FAERS Safety Report 19195872 (Version 1)
Quarter: 2021Q2

REPORT INFORMATION
  Report Type: Spontaneous
  Country: NO (occurrence: NO)
  Receive Date: 20210429
  Receipt Date: 20210429
  Transmission Date: 20210717
  Serious: Yes (Life-Threatening, Hospitalization, Other)
  Sender: FDA-Public Use
  Company Number: NO-BAYER-2021-129904

PATIENT
  Age: 38 Year
  Sex: Female

DRUGS (1)
  1. LEVONORGESTREL IUS [UNKNOWN] [Suspect]
     Active Substance: LEVONORGESTREL
     Route: 015

REACTIONS (8)
  - Pregnancy with contraceptive device [Recovered/Resolved]
  - Infection [None]
  - Uterine injury [Recovered/Resolved]
  - Gastrointestinal injury [Recovered/Resolved]
  - Premature baby [None]
  - Post-traumatic stress disorder [None]
  - Drug ineffective [None]
  - Intra-abdominal haemorrhage [Recovered/Resolved]

NARRATIVE: CASE EVENT DATE: 2020
